FAERS Safety Report 5328096-3 (Version None)
Quarter: 2007Q2

REPORT INFORMATION
  Report Type: 
  Country: None (occurrence: None)
  Receive Date: 20070517
  Receipt Date: 20070517
  Transmission Date: 20071010
  Serious: Yes (Other)
  Sender: FDA-Public Use
  Company Number: US-GENENTECH-232806

PATIENT
  Age: 41 Year
  Sex: Male

DRUGS (2)
  1. BEVACIZUMAB [Suspect]
     Indication: DRUG USE FOR UNKNOWN INDICATION
     Dosage: UNK, Q2W
  2. CHEMO ADMINISTERED REGIMEN UNKNOWN [Concomitant]
     Indication: DRUG USE FOR UNKNOWN INDICATION
     Dosage: UNK, 1/WEEK

REACTIONS (2)
  - DISEASE PROGRESSION [None]
  - PULMONARY HYPERTENSION [None]
